FAERS Safety Report 7498383-1 (Version None)
Quarter: 2011Q2

REPORT INFORMATION
  Report Type: 
  Country: None (occurrence: None)
  Receive Date: 20110524
  Receipt Date: 20110502
  Transmission Date: 20111010
  Serious: Yes (Other)
  Sender: FDA-Public Use
  Company Number: US-BAYER-2011-012616

PATIENT
  Age: 42 Year
  Sex: Female
  Weight: 76.19 kg

DRUGS (7)
  1. ACETAMINOPHEN [Concomitant]
     Dosage: UNK UNK, PRN
  2. YASMIN [Suspect]
     Indication: PRODUCT USED FOR UNKNOWN INDICATION
     Dosage: UNK
     Dates: start: 20060601, end: 20100112
  3. DROSPIRENONE AND ETHINYL ESTRADIOL [Suspect]
     Indication: PRODUCT USED FOR UNKNOWN INDICATION
     Dosage: UNK
     Dates: start: 20060601, end: 20100112
  4. FUROSEMIDE [Concomitant]
  5. ADVIL LIQUI-GELS [Concomitant]
     Dosage: UNK UNK, PRN
  6. MOTRIN [Concomitant]
     Dosage: UNK UNK, PRN
  7. BUTALBITAL [Concomitant]

REACTIONS (4)
  - MIGRAINE [None]
  - PAIN [None]
  - OEDEMA PERIPHERAL [None]
  - DEEP VEIN THROMBOSIS [None]
